FAERS Safety Report 6504575-8 (Version None)
Quarter: 2009Q4

REPORT INFORMATION
  Report Type: 
  Country: None (occurrence: None)
  Receive Date: 20091215
  Receipt Date: 20091204
  Transmission Date: 20100525
  Serious: Yes (Hospitalization)
  Sender: FDA-Public Use
  Company Number: 2009AC000456

PATIENT
  Age: 73 Year
  Sex: Female

DRUGS (10)
  1. DIGOXIN [Suspect]
     Dosage: 0.125 MG; PO
     Route: 048
     Dates: start: 20030101
  2. METOPROLOL TARTRATE [Concomitant]
  3. GEMFIBROZIL [Concomitant]
  4. SINGULAIR [Concomitant]
  5. NITROGLYCERIN [Concomitant]
  6. PREMARIN [Concomitant]
  7. VERAPAMIL [Concomitant]
  8. METOPROLOL TARTRATE [Concomitant]
  9. GEMFIBROZIL [Concomitant]
  10. SIMVASTATIN [Concomitant]

REACTIONS (5)
  - ECONOMIC PROBLEM [None]
  - MAMMOGRAM ABNORMAL [None]
  - MULTIPLE INJURIES [None]
  - PALPITATIONS [None]
  - SURGERY [None]
